FAERS Safety Report 23501971 (Version 1)
Quarter: 2024Q1

REPORT INFORMATION
  Report Type: Spontaneous
  Country: FR (occurrence: FR)
  Receive Date: 20240208
  Receipt Date: 20240208
  Transmission Date: 20240410
  Serious: Yes (Hospitalization)
  Sender: FDA-Public Use
  Company Number: None

PATIENT
  Age: 91 Year
  Sex: Female
  Weight: 88.3 kg

DRUGS (2)
  1. MIRTAZAPINE [Interacting]
     Active Substance: MIRTAZAPINE
     Indication: Depression
     Dosage: 15 MILLIGRAM, QD (IN THE EVENING)
     Route: 048
     Dates: start: 20231204, end: 20231214
  2. TRAMADOL HYDROCHLORIDE [Interacting]
     Active Substance: TRAMADOL HYDROCHLORIDE
     Indication: Lumbar spinal stenosis
     Dosage: UNK
     Route: 048
     Dates: end: 20231214

REACTIONS (4)
  - Confusional state [Recovered/Resolved]
  - Epilepsy [Recovered/Resolved]
  - Drug interaction [Recovered/Resolved]
  - Convulsive threshold lowered [Recovered/Resolved]

NARRATIVE: CASE EVENT DATE: 20231204
